FAERS Safety Report 4579129-3 (Version None)
Quarter: 2005Q1

REPORT INFORMATION
  Report Type: 
  Country: None (occurrence: None)
  Receive Date: 20050121
  Receipt Date: 20040518
  Transmission Date: 20050727
  Serious: Yes (Other)
  Sender: FDA-Public Use
  Company Number: STA-AE-04-MTX-196

PATIENT
  Age: 68 Year
  Sex: Female

DRUGS (29)
  1. METHOTREXATE [Suspect]
     Indication: CREST SYNDROME
     Dosage: 7.5 MG 1X PER 1 WK, ORAL
     Route: 048
     Dates: start: 19950501
  2. METHOTREXATE [Suspect]
     Indication: RHEUMATOID ARTHRITIS
     Dosage: 7.5 MG 1X PER 1 WK, ORAL
     Route: 048
     Dates: start: 19950501
  3. METHOTREXATE [Suspect]
     Indication: SJOGREN'S SYNDROME
     Dosage: 7.5 MG 1X PER 1 WK, ORAL
     Route: 048
     Dates: start: 19950501
  4. METHOTREXATE [Suspect]
     Indication: CREST SYNDROME
     Dosage: 15 MG 1X PER 1 WK, ORAL
     Route: 048
  5. METHOTREXATE [Suspect]
     Indication: RHEUMATOID ARTHRITIS
     Dosage: 15 MG 1X PER 1 WK, ORAL
     Route: 048
  6. METHOTREXATE [Suspect]
     Indication: SJOGREN'S SYNDROME
     Dosage: 15 MG 1X PER 1 WK, ORAL
     Route: 048
  7. FOLIC AICD (FOLIC ACID) [Concomitant]
  8. LIPITOR [Concomitant]
  9. NEXIUM [Concomitant]
  10. NORVASC [Concomitant]
  11. PLETAL [Concomitant]
  12. ASPIRIN [Concomitant]
  13. CENTRUM (MULTIVITAMIN/MULTIMINERAL) [Concomitant]
  14. CITRACAL (CALCIUM CITRATE) [Concomitant]
  15. SLO-MAG (MAGNESIUM CHLORIDE ANHYDROUS0 [Concomitant]
  16. CALCIUM WITH VITAMIN D (CALCIUM PHOPHATE/CALCIUM SODIUM LACTATE/ERGOCA [Concomitant]
  17. VITAMIN C(ASCORBIC ACID) [Concomitant]
  18. VITAMIN E [Concomitant]
  19. PAMIDRONATE DISODIUM [Concomitant]
  20. PHOSPHORUS (PHOSPHORUS) [Concomitant]
  21. AVALIDE [Concomitant]
  22. SODIUM FLUORIDE (SOLDIUM FLUORIDE) [Concomitant]
  23. SALAGEN [Concomitant]
  24. CARAFATE [Concomitant]
  25. AMOXICILLIN [Concomitant]
  26. MYCELEX [Concomitant]
  27. PREDNISONE [Concomitant]
  28. SYNTHROID [Concomitant]
  29. TOPROL XL (METOPROLOL SUCINATE0 [Concomitant]

REACTIONS (6)
  - CHILLS [None]
  - HEADACHE [None]
  - HERPES ZOSTER [None]
  - NAUSEA [None]
  - NUCHAL RIGIDITY [None]
  - PAIN [None]
